FAERS Safety Report 7103378-3 (Version None)
Quarter: 2010Q4

REPORT INFORMATION
  Report Type: 
  Country: None (occurrence: None)
  Receive Date: 20101115
  Receipt Date: 20101104
  Transmission Date: 20110411
  Serious: Yes (Life-Threatening, Hospitalization)
  Sender: FDA-Public Use
  Company Number: US-JNJFOC-20061101727

PATIENT
  Sex: Female
  Weight: 117 kg

DRUGS (11)
  1. CNTO 1275 [Suspect]
     Route: 058
  2. CNTO 1275 [Suspect]
     Indication: PSORIASIS
     Route: 058
  3. PLACEBO [Suspect]
     Indication: PSORIASIS
     Route: 058
  4. PLACEBO [Suspect]
     Route: 058
  5. VICODIN [Concomitant]
     Route: 048
     Dates: start: 20060815
  6. PERCOCET [Concomitant]
     Route: 048
     Dates: start: 20060821
  7. ACTONEL [Concomitant]
     Route: 048
  8. AMITRIPTLINE [Concomitant]
  9. TYLENOL [Concomitant]
     Route: 048
  10. ALEVE (CAPLET) [Concomitant]
     Route: 048
  11. LEVAQUIN [Concomitant]

REACTIONS (4)
  - DIVERTICULAR PERFORATION [None]
  - RESPIRATORY FAILURE [None]
  - SEPSIS [None]
  - WOUND INFECTION STAPHYLOCOCCAL [None]
